FAERS Safety Report 9716786 (Version 1)
Quarter: 2013Q4

REPORT INFORMATION
  Report Type: Spontaneous
  Country: US (occurrence: US)
  Receive Date: 20131127
  Receipt Date: 20131127
  Transmission Date: 20140711
  Serious: Yes (Other)
  Sender: FDA-Public Use
  Company Number: US-PFIZER INC-2013334368

PATIENT
  Sex: Female

DRUGS (5)
  1. ADVIL [Suspect]
     Indication: PAIN
     Dosage: UNK, 1X/DAY
     Dates: start: 20131117, end: 20131120
  2. ADVIL [Suspect]
     Indication: POLYMYALGIA RHEUMATICA
  3. ADVIL [Suspect]
     Indication: PAIN
     Dosage: 6 DF, 1X/DAY
     Dates: end: 2013
  4. ADVIL [Suspect]
     Indication: POLYMYALGIA RHEUMATICA
  5. LITHIUM CARBONATE [Suspect]
     Indication: BIPOLAR DISORDER
     Dosage: UNK

REACTIONS (3)
  - Blood pressure increased [Unknown]
  - Thyroid disorder [Unknown]
  - Drug intolerance [Unknown]
